FAERS Safety Report 16033641 (Version 1)
Quarter: 2019Q1

REPORT INFORMATION
  Report Type: Spontaneous
  Country: CA (occurrence: CA)
  Receive Date: 20190305
  Receipt Date: 20190305
  Transmission Date: 20190418
  Serious: Yes (Other)
  Sender: FDA-Public Use
  Company Number: CA-TEVA-2019-CA-1020118

PATIENT
  Age: 78 Year
  Sex: Female

DRUGS (4)
  1. METHOTREXATE. [Suspect]
     Active Substance: METHOTREXATE
     Indication: PRODUCT USED FOR UNKNOWN INDICATION
     Route: 048
  2. CELEBREX [Suspect]
     Active Substance: CELECOXIB
     Indication: PRODUCT USED FOR UNKNOWN INDICATION
     Route: 065
  3. SHINGRIX HERPES ZOSTER VACCINE (NONLIVE RECOMBINANT,AS01B ADJUVANTED) [Concomitant]
     Indication: IMMUNISATION
  4. ORENCIA [Concomitant]
     Active Substance: ABATACEPT

REACTIONS (7)
  - Neck pain [Unknown]
  - Nephrolithiasis [Unknown]
  - Pain in extremity [Unknown]
  - Pain [Unknown]
  - Swelling [Unknown]
  - Arthralgia [Unknown]
  - Musculoskeletal pain [Unknown]
